FAERS Safety Report 21943807 (Version 3)
Quarter: 2023Q1

REPORT INFORMATION
  Report Type: Report from Study
  Country: US (occurrence: US)
  Receive Date: 20230202
  Receipt Date: 20230331
  Transmission Date: 20230417
  Serious: Yes (Death)
  Sender: FDA-Public Use
  Company Number: US-ABBVIE-4292343

PATIENT
  Sex: Male

DRUGS (5)
  1. VENCLEXTA [Suspect]
     Active Substance: VENETOCLAX
     Indication: Chronic lymphocytic leukaemia recurrent
     Dosage: 200MG(2X100MG TABS) DAILY WEEK 4, WEEK 4: 200MG; LINE OF THERAPY: SECOND
     Route: 048
  2. VENCLEXTA [Suspect]
     Active Substance: VENETOCLAX
     Indication: Chronic lymphocytic leukaemia recurrent
     Dosage: TAKE 20MG BY MOUTH EVERY DAY ON WEEK 1, LINE OF THERAPY- SECOND, DATE OF TREATMENT-02-MAY-2022
     Route: 048
     Dates: start: 20220502
  3. VENCLEXTA [Suspect]
     Active Substance: VENETOCLAX
     Indication: Chronic lymphocytic leukaemia recurrent
     Dosage: TAKE 4 TABLET(S) BY MOUTH EVERY DAY
     Route: 048
  4. VENCLEXTA [Suspect]
     Active Substance: VENETOCLAX
     Indication: Chronic lymphocytic leukaemia recurrent
     Dosage: 100MG(1X100MG TAB) BY MOUTH DAILY WEEK 3, WEEK 3: 100MG
     Route: 048
  5. RUXIENCE [Concomitant]
     Active Substance: RITUXIMAB-PVVR
     Indication: Product used for unknown indication

REACTIONS (1)
  - COVID-19 pneumonia [Fatal]
